FAERS Safety Report 5277171-0 (Version None)
Quarter: 2007Q1

REPORT INFORMATION
  Report Type: 
  Country: None (occurrence: None)
  Receive Date: 20061213
  Receipt Date: 20050308
  Transmission Date: 20070707
  Serious: No
  Sender: FDA-Public Use
  Company Number: 2005UW02117

PATIENT
  Age: 67 Year
  Sex: Female
  Weight: 109.7705 kg

DRUGS (3)
  1. SEROQUEL [Suspect]
     Indication: AGITATION
     Dosage: 300 MG DAILY; PO
     Route: 048
     Dates: start: 20030525, end: 20041109
  2. GLYBURIDE [Concomitant]
  3. METFORMIN HCL [Concomitant]

REACTIONS (2)
  - GLYCOSYLATED HAEMOGLOBIN INCREASED [None]
  - HYPERGLYCAEMIA [None]
